FAERS Safety Report 5078491-5 (Version None)
Quarter: 2006Q3

REPORT INFORMATION
  Report Type: 
  Country: None (occurrence: None)
  Receive Date: 20060811
  Receipt Date: 20060802
  Transmission Date: 20061208
  Serious: Yes (Hospitalization)
  Sender: FDA-Public Use
  Company Number: BE-SANOFI-SYNTHELABO-F01200601786

PATIENT
  Sex: Female
  Weight: 80 kg

DRUGS (6)
  1. MOXON [Concomitant]
     Dosage: UNK
     Route: 065
     Dates: start: 20060121
  2. LORMETAZEPAM [Concomitant]
     Dosage: UNK
     Route: 065
     Dates: start: 20060125
  3. LIPITOR [Concomitant]
     Dosage: UNK
     Route: 065
     Dates: start: 20060220
  4. ENCERON [Concomitant]
     Dosage: UNK
     Route: 065
     Dates: start: 20060118
  5. ASAFLOW [Concomitant]
     Dosage: UNK
     Route: 065
     Dates: start: 20060119
  6. CLOPIDOGREL [Suspect]
     Indication: ACUTE CORONARY SYNDROME
     Dosage: UNK
     Route: 048
     Dates: start: 20060119

REACTIONS (3)
  - C-REACTIVE PROTEIN INCREASED [None]
  - HYPOKALAEMIA [None]
  - PAIN IN EXTREMITY [None]
